FAERS Safety Report 7717424-7 (Version None)
Quarter: 2011Q3

REPORT INFORMATION
  Report Type: 
  Country: None (occurrence: None)
  Receive Date: 20110823
  Receipt Date: 20110411
  Transmission Date: 20111222
  Serious: No
  Sender: FDA-Public Use
  Company Number: 20110411CINRY1944

PATIENT
  Sex: Female

DRUGS (2)
  1. CINRYZE [Suspect]
     Indication: PROPHYLAXIS
     Dosage: (1000 UNIT, EVERY 3 TO 4 DAYS(, INTRAVENOUS
     Route: 042
     Dates: start: 20110214
  2. CINRYZE [Suspect]
     Indication: HEREDITARY ANGIOEDEMA
     Dosage: (1000 UNIT, EVERY 3 TO 4 DAYS(, INTRAVENOUS
     Route: 042
     Dates: start: 20110214

REACTIONS (1)
  - HEREDITARY ANGIOEDEMA [None]
